FAERS Safety Report 12548651 (Version 1)
Quarter: 2016Q3

REPORT INFORMATION
  Report Type: Spontaneous
  Country: US (occurrence: US)
  Receive Date: 20160712
  Receipt Date: 20160712
  Transmission Date: 20161109
  Serious: No
  Sender: FDA-Public Use
  Company Number: US-TEVA-663364USA

PATIENT

DRUGS (1)
  1. LAMOTRIGINE. [Suspect]
     Active Substance: LAMOTRIGINE

REACTIONS (8)
  - Screaming [Unknown]
  - Mood swings [Unknown]
  - Abnormal behaviour [Unknown]
  - Muscle spasms [Unknown]
  - Somnolence [Unknown]
  - Memory impairment [Unknown]
  - Dizziness [Unknown]
  - Crying [Unknown]
